FAERS Safety Report 9221813 (Version 1)
Quarter: 2013Q1

REPORT INFORMATION
  Report Type: Spontaneous
  Country: US (occurrence: None)
  Receive Date: 20120831
  Receipt Date: 20120831
  Transmission Date: 20140127
  Serious: Yes (Other)
  Sender: FDA-Public Use
  Company Number: 163-22393-12071260

PATIENT
  Sex: 0

DRUGS (1)
  1. ISTODAX [Suspect]
     Indication: SQUAMOUS CELL CARCINOMA OF HEAD AND NECK
     Dosage: 13 MG/M2, 4 HOURS ON DAYS 1, 8, 15

REACTIONS (17)
  - Pulmonary embolism [None]
  - Anaemia [None]
  - Thrombocytopenia [None]
  - Hypotension [None]
  - Fatigue [None]
  - Decreased appetite [None]
  - Nausea [None]
  - Vomiting [None]
  - Lung infection [None]
  - Soft tissue infection [None]
  - Hypertension [None]
  - Pain [None]
  - Dyspepsia [None]
  - Diarrhoea [None]
  - Constipation [None]
  - Disease progression [None]
  - Drug ineffective [None]
